FAERS Safety Report 4369857-7 (Version None)
Quarter: 2004Q2

REPORT INFORMATION
  Report Type: 
  Country: None (occurrence: None)
  Receive Date: 20040527
  Receipt Date: 20040514
  Transmission Date: 20050107
  Serious: Yes (Death, Hospitalization, Other)
  Sender: FDA-Public Use
  Company Number: 2004000436

PATIENT
  Age: 98 Year
  Sex: Female
  Weight: 67 kg

DRUGS (13)
  1. NEURONTIN [Suspect]
     Indication: ILL-DEFINED DISORDER
     Dosage: 400 MG (100 MG, 4 IN 1 D), ORAL
     Route: 048
     Dates: start: 20030407
  2. METOCLOPRAMIDE HYDROCHLORIDE [Concomitant]
  3. LORMETAZEPAM           (LORMETAZEPAM) [Concomitant]
  4. LATANOPROST [Concomitant]
  5. GLICLAZIDE       (GLICLAZIDE) [Concomitant]
  6. LANSOPRAZOLE [Concomitant]
  7. PARAMOL-118 (DIHYDROCODEINE BITARTRATE, PARACETAMOL) [Concomitant]
  8. BRIMONIDINE TARTRATE           (BRIMONIDINE TARTRATE) [Concomitant]
  9. PEPTAC [Concomitant]
  10. DORZOLAMIDE HYDROCHLORIDE [Concomitant]
  11. AMLODIPINE BESYLATE [Concomitant]
  12. PROCHLORPERAZINE [Concomitant]
  13. FUROSEMIDE [Concomitant]

REACTIONS (10)
  - ABDOMINAL PAIN [None]
  - BLOOD GLUCOSE INCREASED [None]
  - COLITIS ISCHAEMIC [None]
  - GANGRENE [None]
  - GLUCOSE URINE PRESENT [None]
  - GLYCOSYLATED HAEMOGLOBIN INCREASED [None]
  - HYPONATRAEMIA [None]
  - PAIN IN EXTREMITY [None]
  - PERIPHERAL ISCHAEMIA [None]
  - WHITE BLOOD CELL COUNT INCREASED [None]
